FAERS Safety Report 15202425 (Version 1)
Quarter: 2018Q3

REPORT INFORMATION
  Report Type: Spontaneous
  Country: JP (occurrence: JP)
  Receive Date: 20180726
  Receipt Date: 20180726
  Transmission Date: 20181010
  Serious: Yes (Hospitalization)
  Sender: FDA-Public Use
  Company Number: JP-MYLANLABS-2018M1054972

PATIENT
  Age: 33 Year
  Sex: Female
  Weight: 66 kg

DRUGS (4)
  1. EPHEDRINE. [Concomitant]
     Active Substance: EPHEDRINE
     Indication: PRODUCT USED FOR UNKNOWN INDICATION
     Dosage: TOTAL DOSE OF 25MG
     Route: 065
  2. MIDAZOLAM [Concomitant]
     Active Substance: MIDAZOLAM HYDROCHLORIDE
     Indication: SEDATIVE THERAPY
     Route: 042
  3. DROPERIDOL. [Concomitant]
     Active Substance: DROPERIDOL
     Indication: NAUSEA
     Route: 042
  4. BUPIVACAINE. [Suspect]
     Active Substance: BUPIVACAINE
     Indication: SPINAL ANAESTHESIA
     Dosage: AT THE L3/4 LEVEL
     Route: 037

REACTIONS (2)
  - Myoclonus [Recovered/Resolved]
  - Maternal exposure during delivery [Recovered/Resolved]
